FAERS Safety Report 21842309 (Version 1)
Quarter: 2023Q1

REPORT INFORMATION
  Report Type: Spontaneous
  Country: IN (occurrence: None)
  Receive Date: 20230110
  Receipt Date: 20230110
  Transmission Date: 20230418
  Serious: Yes (Death)
  Sender: FDA-Public Use
  Company Number: IN-ROCHE-3245934

PATIENT
  Age: 52 Year
  Sex: Male

DRUGS (1)
  1. GAZYVA [Suspect]
     Active Substance: OBINUTUZUMAB
     Indication: Diffuse large B-cell lymphoma
     Route: 042
     Dates: start: 20221108

REACTIONS (3)
  - Off label use [Unknown]
  - Off label use [Unknown]
  - Hypotension [Fatal]

NARRATIVE: CASE EVENT DATE: 20230108
